FAERS Safety Report 7469324-8 (Version None)
Quarter: 2011Q2

REPORT INFORMATION
  Report Type: 
  Country: None (occurrence: None)
  Receive Date: 20110510
  Receipt Date: 20110504
  Transmission Date: 20111010
  Serious: Yes (Hospitalization)
  Sender: FDA-Public Use
  Company Number: BR-B.I. PHARMACEUTICALS,INC./RIDGEFIELD-2011-BR-00426BR

PATIENT
  Sex: Female

DRUGS (6)
  1. ATROVENT [Suspect]
     Indication: ASTHMA
     Dosage: NR
     Route: 055
     Dates: start: 20110301
  2. FORADIL [Suspect]
     Dosage: NR
     Dates: start: 20110301
  3. COMBIVENT [Suspect]
     Indication: ASTHMA
     Dosage: NR
     Route: 055
     Dates: start: 20110101
  4. BEROTEC [Suspect]
     Indication: ASTHMA
     Dosage: NR
     Route: 055
     Dates: end: 20110318
  5. THEOPHYLLINE [Suspect]
     Indication: EMPHYSEMA
     Dosage: NR
     Dates: start: 20110301
  6. SERETIDE [Concomitant]
     Indication: EMPHYSEMA
     Dosage: NR
     Dates: start: 20100801

REACTIONS (5)
  - LUNG INFECTION [None]
  - SOMNOLENCE [None]
  - DIZZINESS [None]
  - HEADACHE [None]
  - DRUG INEFFECTIVE [None]
